FAERS Safety Report 23107667 (Version 1)
Quarter: 2023Q4

REPORT INFORMATION
  Report Type: Report from Study
  Country: JP (occurrence: JP)
  Receive Date: 20231026
  Receipt Date: 20231026
  Transmission Date: 20240110
  Serious: Yes (Hospitalization, Other)
  Sender: FDA-Public Use
  Company Number: JP-TAKEDA-2021TJP013802

PATIENT
  Age: 51 Year
  Sex: Female
  Weight: 56 kg

DRUGS (3)
  1. PANITUMUMAB [Suspect]
     Active Substance: PANITUMUMAB
     Indication: Adenocarcinoma of colon
     Dosage: 330 MILLIGRAM, Q2WK
     Route: 042
     Dates: start: 20210120, end: 20210325
  2. IRINOTECAN [Suspect]
     Active Substance: IRINOTECAN
     Indication: Adenocarcinoma of colon
     Dosage: 190 MILLIGRAM, Q2WEEKS
     Route: 065
     Dates: start: 20210120, end: 20210120
  3. IRINOTECAN [Suspect]
     Active Substance: IRINOTECAN
     Dosage: 150 MILLIGRAM, Q2WEEKS
     Route: 065
     Dates: start: 20210210, end: 20210210

REACTIONS (16)
  - Neutrophil count decreased [Unknown]
  - Pyelonephritis [Not Recovered/Not Resolved]
  - Aspartate aminotransferase increased [Recovered/Resolved]
  - Alanine aminotransferase increased [Recovered/Resolved]
  - Dry skin [Unknown]
  - Paronychia [Unknown]
  - Stomatitis [Unknown]
  - Pruritus [Unknown]
  - Acne [Unknown]
  - Blood magnesium decreased [Unknown]
  - Blood sodium decreased [Not Recovered/Not Resolved]
  - Peripheral sensory neuropathy [Unknown]
  - Aspartate aminotransferase increased [Recovered/Resolved]
  - Haemoglobin decreased [Not Recovered/Not Resolved]
  - Pyrexia [Unknown]
  - Blood potassium decreased [Unknown]

NARRATIVE: CASE EVENT DATE: 20210325
